FAERS Safety Report 5210083-7 (Version None)
Quarter: 2006Q4

REPORT INFORMATION
  Report Type: 
  Country: None (occurrence: None)
  Receive Date: 20061103
  Receipt Date: 20060724
  Transmission Date: 20070319
  Serious: Yes (Other)
  Sender: FDA-Public Use
  Company Number: 456894

PATIENT
  Age: 50 Year
  Sex: Male
  Weight: 90.7 kg

DRUGS (1)
  1. BONIVA [Suspect]
     Indication: METASTASES TO BONE
     Dosage: INTRAVENOUS
     Route: 042
     Dates: start: 20060515

REACTIONS (2)
  - COLON CANCER [None]
  - CONDITION AGGRAVATED [None]
